FAERS Safety Report 9587306 (Version 1)
Quarter: 2013Q4

REPORT INFORMATION
  Report Type: Spontaneous
  Country: US (occurrence: None)
  Receive Date: 20131003
  Receipt Date: 20131003
  Transmission Date: 20140711
  Serious: Yes (Hospitalization)
  Sender: FDA-Public Use
  Company Number: None

PATIENT
  Age: 57 Year
  Sex: Male
  Weight: 78.47 kg

DRUGS (3)
  1. GEMCITABINE 1200MG/M2 [Suspect]
     Indication: BLADDER CANCER
     Dosage: EVERY 2 WEEKS X 3 CYCLES
     Dates: start: 20130717, end: 20130814
  2. NEULASTA [Suspect]
     Indication: BLADDER CANCER
     Dosage: EVERY 2WEEKS AFTER CHEMO?7/18;  8/1;  8/15/13
     Dates: start: 20130718
  3. CISPLATIN 70 MG/M2 IV [Suspect]
     Indication: BLADDER CANCER
     Dosage: EVERY 2 WEEKS X 3 CYCLES
     Dates: start: 20130717, end: 20130814

REACTIONS (6)
  - Vomiting [None]
  - Ileus [None]
  - Small intestinal obstruction [None]
  - Ischaemia [None]
  - Infection [None]
  - Inflammation [None]
